FAERS Safety Report 20018878 (Version 1)
Quarter: 2021Q4

REPORT INFORMATION
  Report Type: Spontaneous
  Country: US (occurrence: US)
  Receive Date: 20211101
  Receipt Date: 20211101
  Transmission Date: 20220303
  Serious: No
  Sender: FDA-Public Use
  Company Number: US-TEVA-2021-US-1968459

PATIENT
  Sex: Female

DRUGS (1)
  1. QVAR REDIHALER [Suspect]
     Active Substance: BECLOMETHASONE DIPROPIONATE
     Indication: Asthma
     Dosage: DOSAGE FORM: INHALATION - AEROSOL/ USING 2 YEARS
     Route: 065

REACTIONS (5)
  - Erythema [Unknown]
  - Eye swelling [Unknown]
  - Ocular hyperaemia [Unknown]
  - Salivary hypersecretion [Unknown]
  - Product quality issue [Unknown]
